FAERS Safety Report 8987379 (Version 4)
Quarter: 2014Q3

REPORT INFORMATION
  Report Type: Report from Study
  Country: US (occurrence: US)
  Receive Date: 20121226
  Receipt Date: 20140910
  Transmission Date: 20150326
  Serious: Yes (Hospitalization, Other)
  Sender: FDA-Public Use
  Company Number: US-009507513-1212USA009332

PATIENT
  Age: 69 Year
  Sex: Male
  Weight: 84.35 kg

DRUGS (25)
  1. CARBIDOPA (+) LEVODOPA [Concomitant]
     Active Substance: CARBIDOPA\LEVODOPA
  2. VELCADE [Suspect]
     Active Substance: BORTEZOMIB
     Indication: PLASMA CELL MYELOMA
     Dosage: 2.6 MG, DAYS 1,4,8,11, ALSO REPORTED AS (TWICE WEEKLY)
     Route: 058
     Dates: start: 20120416, end: 20130612
  3. CARFILZOMIB [Concomitant]
     Active Substance: CARFILZOMIB
  4. CYCLOPHOSPHAMIDE. [Suspect]
     Active Substance: CYCLOPHOSPHAMIDE
     Indication: PLASMA CELL MYELOMA
     Dosage: 500 MG, QW
     Route: 048
     Dates: start: 20120622
  5. OMEPRAZOLE. [Concomitant]
     Active Substance: OMEPRAZOLE
  6. UBIDECARENONE [Concomitant]
     Active Substance: UBIDECARENONE
  7. RAMIPRIL. [Concomitant]
     Active Substance: RAMIPRIL
  8. VITAMIN D [Concomitant]
     Active Substance: CHOLECALCIFEROL
  9. DARBEPOETIN ALFA [Concomitant]
     Active Substance: DARBEPOETIN ALFA
  10. VELCADE [Suspect]
     Active Substance: BORTEZOMIB
     Dosage: 2.6 MG, DAYS 1,4,8,11
     Route: 058
     Dates: start: 20100901, end: 20101115
  11. FIBER [Concomitant]
     Active Substance: PSYLLIUM HUSK
  12. SOMA [Concomitant]
     Active Substance: CARISOPRODOL
  13. ZOLEDRONATE DISODIUM [Concomitant]
     Active Substance: ZOLEDRONATE DISODIUM
  14. DEXAMETHASONE. [Concomitant]
     Active Substance: DEXAMETHASONE
  15. MELPHALAN [Suspect]
     Active Substance: MELPHALAN
     Indication: PLASMA CELL MYELOMA
     Dosage: 18 MG, 1-4 Q 28 DAYS
     Route: 048
     Dates: start: 20130513, end: 20130614
  16. MELPHALAN [Suspect]
     Active Substance: MELPHALAN
     Dosage: 18 MG, 1-4 Q28D
     Route: 048
     Dates: start: 20100901, end: 20130820
  17. AMBIEN [Concomitant]
     Active Substance: ZOLPIDEM TARTRATE
  18. DILAUDID [Concomitant]
     Active Substance: HYDROMORPHONE HYDROCHLORIDE
  19. HEXADROL [Suspect]
     Active Substance: DEXAMETHASONE
     Dosage: 40 MG, 4 DAYS ON, 4 DAYS OFF
     Route: 048
     Dates: start: 20120416
  20. SODIUM CHLORIDE. [Concomitant]
     Active Substance: SODIUM CHLORIDE
     Indication: FLUID REPLACEMENT
     Dosage: ROUTE: CENTRAL VENOUS CATHETER FLUSH
  21. PREDNISONE. [Suspect]
     Active Substance: PREDNISONE
     Indication: PLASMA CELL MYELOMA
     Dosage: 120 MG, DAYS 1-4 Q 28 DAYS
     Route: 048
     Dates: start: 20130513, end: 20130614
  22. GABAPENTIN. [Concomitant]
     Active Substance: GABAPENTIN
  23. LOMOTIL (ATROPINE SULFATE (+) DIPHENOXYLATE HYDROCHLORIDE) [Concomitant]
  24. OMEGA-3 ACIDS [Concomitant]
     Active Substance: OMEGA-3 FATTY ACIDS
  25. PAMIDRONATE DISODIUM. [Concomitant]
     Active Substance: PAMIDRONATE DISODIUM

REACTIONS (36)
  - Disease progression [Unknown]
  - Lymphocyte count increased [Unknown]
  - Blood calcium increased [Unknown]
  - Blood alkaline phosphatase increased [Unknown]
  - Systolic dysfunction [Unknown]
  - Mean cell volume increased [Unknown]
  - Blood potassium increased [Unknown]
  - Blood immunoglobulin M increased [Unknown]
  - Bundle branch block left [Unknown]
  - Haematocrit decreased [Unknown]
  - Blood bilirubin increased [Unknown]
  - Blood lactate dehydrogenase decreased [Unknown]
  - White blood cell count decreased [Unknown]
  - Mean cell haemoglobin increased [Unknown]
  - Protein total increased [Unknown]
  - Alanine aminotransferase increased [Unknown]
  - Anaemia [Unknown]
  - Red blood cell count decreased [Unknown]
  - Red cell distribution width increased [Unknown]
  - Neutrophil count decreased [Unknown]
  - Eosinophil count increased [Unknown]
  - Blood sodium decreased [Unknown]
  - Blood chloride decreased [Unknown]
  - Carbon dioxide decreased [Unknown]
  - Blood albumin increased [Unknown]
  - Colitis [Unknown]
  - Thrombocytopenia [Unknown]
  - Monocyte count increased [Unknown]
  - Blood urea increased [Unknown]
  - Transfusion [Unknown]
  - Presyncope [Unknown]
  - Platelet count decreased [Unknown]
  - Blood glucose increased [Unknown]
  - Cardiomyopathy [Unknown]
  - Blood creatinine increased [Unknown]
  - Aspartate aminotransferase increased [Unknown]

NARRATIVE: CASE EVENT DATE: 2012
